FAERS Safety Report 23712001 (Version 2)
Quarter: 2024Q2

REPORT INFORMATION
  Report Type: Spontaneous
  Country: CN (occurrence: CN)
  Receive Date: 20240405
  Receipt Date: 20240412
  Transmission Date: 20240715
  Serious: Yes (Hospitalization, Other)
  Sender: FDA-Public Use
  Company Number: CN-PFIZER INC-PV202400043398

PATIENT
  Age: 43 Year
  Sex: Female
  Weight: 62.5 kg

DRUGS (1)
  1. EPIRUBICIN [Suspect]
     Active Substance: EPIRUBICIN
     Indication: Breast cancer female
     Dosage: 110 MG, 1X/DAY
     Route: 041
     Dates: start: 20240310, end: 20240310

REACTIONS (4)
  - Transaminases increased [Recovered/Resolved]
  - Myelosuppression [Recovered/Resolved]
  - Gastrointestinal disorder [Recovering/Resolving]
  - Gamma-glutamyltransferase increased [Recovering/Resolving]

NARRATIVE: CASE EVENT DATE: 20240301
